FAERS Safety Report 19352618 (Version 2)
Quarter: 2021Q2

REPORT INFORMATION
  Report Type: Report from Study
  Country: JP (occurrence: JP)
  Receive Date: 20210531
  Receipt Date: 20210604
  Transmission Date: 20210717
  Serious: Yes (Other)
  Sender: FDA-Public Use
  Company Number: JP-GLAXOSMITHKLINE-JP2021JPN115417

PATIENT
  Age: 34 Year
  Sex: Female

DRUGS (1)
  1. ACYCLOVIR. [Suspect]
     Active Substance: ACYCLOVIR
     Indication: HERPES SIMPLEX ENCEPHALITIS
     Dosage: UNK

REACTIONS (4)
  - Product use in unapproved indication [Unknown]
  - CSF cell count increased [Recovering/Resolving]
  - Diffusion-weighted brain MRI abnormal [Unknown]
  - Abnormal behaviour [Recovered/Resolved]
